FAERS Safety Report 8911057 (Version 3)
Quarter: 2012Q4

REPORT INFORMATION
  Report Type: 
  Country: JP (occurrence: JP)
  Receive Date: 20121116
  Receipt Date: 20121218
  Transmission Date: 20130627
  Serious: Yes (Life-Threatening, Hospitalization, Other)
  Sender: FDA-Public Use
  Company Number: JP-AMGEN-JPNSP2012072437

PATIENT
  Age: 73 Year
  Sex: Female
  Weight: 39.6 kg

DRUGS (8)
  1. ENBREL [Suspect]
     Indication: RHEUMATOID ARTHRITIS
     Dosage: 25 mg, weekly
     Route: 058
     Dates: start: 20110120, end: 20120224
  2. PREDNISOLON                        /00016201/ [Concomitant]
     Indication: RHEUMATOID ARTHRITIS
     Dosage: 10 mg, 1x/day
     Route: 048
     Dates: start: 1999
  3. PREDNISOLON                        /00016201/ [Concomitant]
     Indication: NEPHRITIS
     Dosage: 30 mg, 1x/day
     Dates: start: 2000
  4. PREDNISOLON                        /00016201/ [Concomitant]
     Dosage: 2.5 mg, 1x/day
     Dates: start: 2002
  5. SELBEX [Concomitant]
     Indication: GASTRITIS
     Dosage: UNK
     Route: 048
     Dates: end: 20120228
  6. CRESTOR [Concomitant]
     Indication: DYSLIPIDAEMIA
     Dosage: UNK
     Route: 048
     Dates: end: 20120228
  7. CELECOX [Concomitant]
     Indication: RHEUMATOID ARTHRITIS
     Dosage: UNK
     Route: 048
     Dates: end: 20120224
  8. EVISTA [Concomitant]
     Indication: OSTEOPOROSIS
     Dosage: UNK
     Route: 048
     Dates: end: 20120228

REACTIONS (9)
  - Respiratory failure [Recovering/Resolving]
  - Duodenal ulcer perforation [Recovered/Resolved]
  - Peritonitis [Recovered/Resolved]
  - Sarcoidosis [Recovering/Resolving]
  - Hypercalcaemia [Recovered/Resolved]
  - Renal impairment [Recovering/Resolving]
  - Blood pressure increased [Unknown]
  - Altered state of consciousness [Recovering/Resolving]
  - Cardiac failure [Recovering/Resolving]
